FAERS Safety Report 14355307 (Version 1)
Quarter: 2018Q1

REPORT INFORMATION
  Report Type: Spontaneous
  Country: US (occurrence: US)
  Receive Date: 20180104
  Receipt Date: 20180104
  Transmission Date: 20180509
  Serious: Yes (Death)
  Sender: FDA-Public Use
  Company Number: None

PATIENT
  Age: 10 Year
  Sex: Female
  Weight: 20.25 kg

DRUGS (2)
  1. SERTRALINE [Concomitant]
     Active Substance: SERTRALINE HYDROCHLORIDE
  2. RISPERDAL [Suspect]
     Active Substance: RISPERIDONE
     Indication: ABNORMAL BEHAVIOUR
     Dosage: QUANTITY:30 TABLET(S); AT BEDTIME?
     Route: 048
     Dates: start: 20170612, end: 20170703

REACTIONS (6)
  - Pyrexia [None]
  - Myocardial infarction [None]
  - Seizure [None]
  - Brain oedema [None]
  - Rash [None]
  - Urinary tract infection [None]

NARRATIVE: CASE EVENT DATE: 20170626
